FAERS Safety Report 13519104 (Version 4)
Quarter: 2018Q1

REPORT INFORMATION
  Report Type: Spontaneous
  Country: JP (occurrence: JP)
  Receive Date: 20170505
  Receipt Date: 20180129
  Transmission Date: 20180508
  Serious: Yes (Other)
  Sender: FDA-Public Use
  Company Number: JP-BIOGEN-2017BV000035

PATIENT
  Age: 6 Decade
  Sex: Male
  Weight: 74.7 kg

DRUGS (1)
  1. ALPROLIX [Suspect]
     Active Substance: EFTRENONACOG ALFA
     Indication: FACTOR IX DEFICIENCY
     Dosage: ROUTINE TREATMENT
     Route: 042

REACTIONS (1)
  - Anti factor IX antibody increased [Not Recovered/Not Resolved]

NARRATIVE: CASE EVENT DATE: 20140407
